FAERS Safety Report 12130559 (Version 2)
Quarter: 2016Q1

REPORT INFORMATION
  Report Type: Spontaneous
  Country: PL (occurrence: PL)
  Receive Date: 20160301
  Receipt Date: 20160328
  Transmission Date: 20160526
  Serious: Yes (Death, Other)
  Sender: FDA-Public Use
  Company Number: PL-TEVA-638581ISR

PATIENT
  Age: 35 Year
  Sex: Female

DRUGS (2)
  1. CARBOPLATIN. [Suspect]
     Active Substance: CARBOPLATIN
     Indication: NEOPLASM
     Dosage: 2 CYCLES OF CHEMOTHERAPY
  2. PACLITAXEL. [Suspect]
     Active Substance: PACLITAXEL
     Indication: NEOPLASM
     Dosage: 2 CYCLES OF CHEMOTHERAPY

REACTIONS (5)
  - Decreased appetite [Unknown]
  - Disseminated intravascular coagulation [Fatal]
  - Hypoproteinaemia [Unknown]
  - Hypokalaemia [Unknown]
  - Foetal death [Unknown]
